FAERS Safety Report 24795239 (Version 1)
Quarter: 2024Q4

REPORT INFORMATION
  Report Type: Spontaneous
  Country: FR (occurrence: FR)
  Receive Date: 20241231
  Receipt Date: 20241231
  Transmission Date: 20250115
  Serious: Yes (Hospitalization)
  Sender: MYLAN
  Company Number: None

PATIENT
  Age: 13 Day
  Sex: Female
  Weight: 0.483 kg

DRUGS (1)
  1. NOREPINEPHRINE [Suspect]
     Active Substance: NOREPINEPHRINE\NOREPINEPHRINE BITARTRATE
     Indication: Premature baby
     Dosage: UNK
     Route: 042

REACTIONS (2)
  - Vasoconstriction [Not Recovered/Not Resolved]
  - Extremity necrosis [Not Recovered/Not Resolved]

NARRATIVE: CASE EVENT DATE: 20241124
